FAERS Safety Report 19039268 (Version 1)
Quarter: 2021Q1

REPORT INFORMATION
  Report Type: Spontaneous
  Country: US (occurrence: US)
  Receive Date: 20210322
  Receipt Date: 20210322
  Transmission Date: 20210420
  Serious: No
  Sender: FDA-Public Use
  Company Number: US-PFIZER INC-2021269326

PATIENT
  Age: 87 Year
  Sex: Female
  Weight: 46.27 kg

DRUGS (8)
  1. DICLOFENAC EPOLAMINE [Suspect]
     Active Substance: DICLOFENAC EPOLAMINE
     Indication: MYOFASCIAL PAIN SYNDROME
  2. CISAPRIDE [Concomitant]
     Active Substance: CISAPRIDE
     Indication: GASTRIC DISORDER
     Dosage: 10 MG, DAILY, TAKE SEVEN TIMES
     Route: 048
  3. FOLIC ACID. [Concomitant]
     Active Substance: FOLIC ACID
     Indication: GASTRIC DISORDER
     Dosage: 1 MG, 1X/DAY, (TAKING FOR YEARS)
     Route: 048
  4. LACTULOSE. [Concomitant]
     Active Substance: LACTULOSE
     Indication: LAXATIVE SUPPORTIVE CARE
     Dosage: 15 ML, 2X/DAY,TAKE TWO TABLESPOONS
  5. DICLOFENAC EPOLAMINE [Suspect]
     Active Substance: DICLOFENAC EPOLAMINE
     Indication: INTERVERTEBRAL DISC DEGENERATION
     Dosage: UNK, 2X/DAY
     Route: 061
  6. ISOSORBIDE DINITRATE. [Concomitant]
     Active Substance: ISOSORBIDE DINITRATE
     Indication: GASTRIC DISORDER
     Dosage: 5 MG, DAILY, TAKE SIX, TAKING FOR A NUMBER OF YEARS
     Route: 048
  7. NITROGLYCERIN. [Concomitant]
     Active Substance: NITROGLYCERIN
     Dosage: 0.3 MG, 4X/DAY, TAKING FOR MANY YEARS
     Route: 048
  8. OMEPRAZOLE. [Concomitant]
     Active Substance: OMEPRAZOLE
     Indication: GASTRIC DISORDER
     Dosage: 20 MG, 2X/DAY, TAKING FOR A NUMBER OF YEARS
     Route: 048

REACTIONS (5)
  - Drug ineffective [Unknown]
  - Dizziness [Unknown]
  - Illness [Unknown]
  - Discomfort [Unknown]
  - Nausea [Unknown]
